FAERS Safety Report 4970177-8 (Version None)
Quarter: 2006Q2

REPORT INFORMATION
  Report Type: 
  Country: None (occurrence: None)
  Receive Date: 20060412
  Receipt Date: 20060403
  Transmission Date: 20061013
  Serious: Yes (Life-Threatening)
  Sender: FDA-Public Use
  Company Number: GR-JNJFOC-20060400414

PATIENT
  Age: 34 Year
  Sex: Female
  Weight: 95 kg

DRUGS (4)
  1. REMICADE [Suspect]
     Route: 042
  2. HUMIRA [Suspect]
     Route: 058
  3. METHOTREXATE [Concomitant]
     Dosage: MAX DOSE.
     Route: 048
  4. SANDIMMUNE [Concomitant]
     Dosage: MAX DOSE.
     Route: 048

REACTIONS (1)
  - TONGUE NEOPLASM MALIGNANT STAGE UNSPECIFIED [None]
